FAERS Safety Report 6232414-1 (Version None)
Quarter: 2009Q2

REPORT INFORMATION
  Report Type: 
  Country: None (occurrence: None)
  Receive Date: 20090615
  Receipt Date: 20090615
  Transmission Date: 20091009
  Serious: Yes (Disabling)
  Sender: FDA-Public Use
  Company Number: None

PATIENT
  Sex: Male
  Weight: 79.3795 kg

DRUGS (1)
  1. DIGOXIN [Suspect]
     Indication: CARDIAC DISORDER
     Dosage: .125 MG 3 A WK

REACTIONS (4)
  - DEPRESSION [None]
  - DIARRHOEA [None]
  - NAUSEA [None]
  - VISUAL ACUITY REDUCED [None]
